FAERS Safety Report 9658841 (Version 2)
Quarter: 2013Q4

REPORT INFORMATION
  Report Type: Spontaneous
  Country: US (occurrence: US)
  Receive Date: 20131030
  Receipt Date: 20131030
  Transmission Date: 20140711
  Serious: Yes (Death, Other)
  Sender: FDA-Public Use
  Company Number: US-NAPPMUNDI-USA-2011-0078846

PATIENT
  Age: 27 Year
  Sex: Male
  Weight: 114.29 kg

DRUGS (6)
  1. OXYCODONE HCL CR TABLETS (SIMILAR TO NDA 22-272) [Suspect]
     Indication: PRODUCT USED FOR UNKNOWN INDICATION
  2. XANAX [Suspect]
     Indication: PRODUCT USED FOR UNKNOWN INDICATION
  3. METHADONE [Suspect]
  4. CODEINE [Suspect]
     Indication: PRODUCT USED FOR UNKNOWN INDICATION
  5. HEROIN [Suspect]
  6. CLONAZEPAM [Suspect]

REACTIONS (3)
  - Overdose [Fatal]
  - Substance abuse [Fatal]
  - Intentional drug misuse [Unknown]
